FAERS Safety Report 4883790-3 (Version None)
Quarter: 2006Q1

REPORT INFORMATION
  Report Type: 
  Country: None (occurrence: None)
  Receive Date: 20060113
  Receipt Date: 20051227
  Transmission Date: 20060701
  Serious: Yes (Hospitalization, Other)
  Sender: FDA-Public Use
  Company Number: US200512004282

PATIENT
  Sex: Female

DRUGS (2)
  1. EVISTA [Suspect]
     Indication: OSTEOPOROSIS
     Dosage: ORAL
     Route: 048
     Dates: start: 20010101
  2. FOSAMAX [Concomitant]

REACTIONS (8)
  - BONE PAIN [None]
  - CARDIAC PROCEDURE COMPLICATION [None]
  - CORONARY ARTERIAL STENT INSERTION [None]
  - FEELING ABNORMAL [None]
  - MITRAL VALVE PROLAPSE [None]
  - POST PROCEDURAL HAEMORRHAGE [None]
  - RENAL ARTERY STENT PLACEMENT [None]
  - TRANSIENT ISCHAEMIC ATTACK [None]
